FAERS Safety Report 10186569 (Version 2)
Quarter: 2014Q2

REPORT INFORMATION
  Report Type: Report from Study
  Country: US (occurrence: US)
  Receive Date: 20140521
  Receipt Date: 20140603
  Transmission Date: 20141212
  Serious: Yes (Hospitalization)
  Sender: FDA-Public Use
  Company Number: US-ACTELION-A-NJ2014-99048

PATIENT
  Age: 55 Week
  Sex: Female

DRUGS (8)
  1. TRACLEER [Suspect]
     Indication: PULMONARY ARTERIAL HYPERTENSION
     Dosage: 15.1 MG, BID
     Route: 048
  2. SILDENAFIL [Concomitant]
  3. ASPIRIN [Concomitant]
  4. LASIX [Concomitant]
  5. OXYGEN [Concomitant]
  6. REGLAN [Concomitant]
  7. ATIVAN [Concomitant]
  8. METHADONE [Concomitant]

REACTIONS (2)
  - Atrial septal defect repair [Recovering/Resolving]
  - Dyspnoea [Unknown]
